FAERS Safety Report 9293974 (Version 1)
Quarter: 2013Q1

REPORT INFORMATION
  Report Type: Spontaneous
  Country: US (occurrence: None)
  Receive Date: 20121217
  Receipt Date: 20121217
  Transmission Date: 20140127
  Serious: Yes (Other)
  Sender: FDA-Public Use
  Company Number: PHEH2012US010629

PATIENT
  Sex: Female

DRUGS (3)
  1. EXFORGE HCT [Suspect]
     Indication: HYPERTENSION
     Dosage: 1 DF
     Route: 048
  2. EXFORGE [Suspect]
     Indication: BLOOD PRESSURE
     Route: 048
  3. COZAAR (LOSARTAN POTASSIUM) (50 MILLIGRAM, TABLETS) (LOSARTAN POTASSIUM) [Suspect]
     Indication: BLOOD PRESSURE
     Route: 048

REACTIONS (2)
  - Heart rate irregular [None]
  - Oedema peripheral [None]
